FAERS Safety Report 8233967-4 (Version None)
Quarter: 2012Q1

REPORT INFORMATION
  Report Type: 
  Country: None (occurrence: None)
  Receive Date: 20120323
  Receipt Date: 20120323
  Transmission Date: 20120608
  Serious: Yes (Hospitalization)
  Sender: FDA-Public Use
  Company Number: None

PATIENT
  Sex: Female
  Weight: 86.8 kg

DRUGS (2)
  1. TAXOL [Suspect]
     Dosage: 259 MG
  2. IFOSFAMIDE [Suspect]
     Dosage: 6 G

REACTIONS (6)
  - HAEMOGLOBIN DECREASED [None]
  - SINUS TACHYCARDIA [None]
  - BLOOD GLUCOSE INCREASED [None]
  - HYPOALBUMINAEMIA [None]
  - BLOOD ALKALINE PHOSPHATASE INCREASED [None]
  - HYPOKALAEMIA [None]
